FAERS Safety Report 23109169 (Version 1)
Quarter: 2023Q4

REPORT INFORMATION
  Report Type: Spontaneous
  Country: IN (occurrence: IN)
  Receive Date: 20231026
  Receipt Date: 20231026
  Transmission Date: 20240109
  Serious: Yes (Other)
  Sender: FDA-Public Use
  Company Number: IN-ASTELLAS-2023US031647

PATIENT
  Age: 65 Year
  Sex: Male

DRUGS (2)
  1. ENFORTUMAB VEDOTIN [Suspect]
     Active Substance: ENFORTUMAB VEDOTIN
     Indication: Transitional cell carcinoma
     Dosage: AROUND 1.1MG/KG RESULTING IN AROUND 80MG PER DOSE, PATIENT^S WEIGHT WAS 70KG, FIRST DOSE
     Route: 042
     Dates: start: 20231006
  2. ENFORTUMAB VEDOTIN [Suspect]
     Active Substance: ENFORTUMAB VEDOTIN
     Dosage: AROUND 1.1MG/KG RESULTING IN AROUND 80MG PER DOSE, PATIENT^S WEIGHT WAS 70KG, SECOND DOSE
     Route: 042
     Dates: start: 20231015

REACTIONS (11)
  - Haematemesis [Not Recovered/Not Resolved]
  - Haemorrhage [Not Recovered/Not Resolved]
  - Cytomegalovirus infection reactivation [Unknown]
  - Thrombocytopenia [Not Recovered/Not Resolved]
  - Gastrointestinal haemorrhage [Recovering/Resolving]
  - Emotional distress [Unknown]
  - Haemoptysis [Not Recovered/Not Resolved]
  - Secretion discharge [Not Recovered/Not Resolved]
  - Haematuria [Not Recovered/Not Resolved]
  - Klebsiella infection [Recovering/Resolving]
  - Pseudomonas infection [Recovering/Resolving]
